FAERS Safety Report 14402071 (Version 1)
Quarter: 2018Q1

REPORT INFORMATION
  Report Type: Spontaneous
  Country: US (occurrence: US)
  Receive Date: 20180117
  Receipt Date: 20180117
  Transmission Date: 20180509
  Serious: Yes (Hospitalization, Other)
  Sender: FDA-Public Use
  Company Number: US-SUNOVION-2018SUN000143

PATIENT
  Age: 65 Year
  Sex: Male
  Weight: 106.12 kg

DRUGS (1)
  1. LUNESTA [Suspect]
     Active Substance: ESZOPICLONE
     Indication: INSOMNIA
     Dosage: 3 MG, QD
     Route: 048
     Dates: start: 2009

REACTIONS (5)
  - Balance disorder [Recovered/Resolved]
  - Limb discomfort [Recovered/Resolved]
  - Cerebrovascular accident [Recovered/Resolved]
  - Atrial fibrillation [Not Recovered/Not Resolved]
  - Dizziness [Recovered/Resolved]

NARRATIVE: CASE EVENT DATE: 20140917
